FAERS Safety Report 5504020-5 (Version None)
Quarter: 2007Q4

REPORT INFORMATION
  Report Type: 
  Country: None (occurrence: None)
  Receive Date: 20071101
  Receipt Date: 20071022
  Transmission Date: 20080405
  Serious: Yes (Hospitalization)
  Sender: FDA-Public Use
  Company Number: PL-MERCK-0710POL00026

PATIENT

DRUGS (2)
  1. TRUSOPT [Suspect]
     Indication: GLAUCOMA
     Route: 047
  2. BETAXOLOL HYDROCHLORIDE [Concomitant]
     Indication: GLAUCOMA
     Route: 047

REACTIONS (1)
  - DRUG INEFFECTIVE [None]
